FAERS Safety Report 5005804-2 (Version None)
Quarter: 2006Q2

REPORT INFORMATION
  Report Type: 
  Country: None (occurrence: None)
  Receive Date: 20060515
  Receipt Date: 20060504
  Transmission Date: 20061013
  Serious: Yes (Hospitalization, Other)
  Sender: FDA-Public Use
  Company Number: HQWYE135317NOV03

PATIENT
  Age: 73 Year
  Sex: Male
  Weight: 87.2 kg

DRUGS (12)
  1. MYLOTARG [Suspect]
     Indication: ACUTE MYELOID LEUKAEMIA
     Dosage: 18 MG 1X PER 1 DAY, INTRAVENOUS
     Route: 042
     Dates: start: 20031105, end: 20031105
  2. LEVAQUIN [Concomitant]
  3. PROTONIX [Concomitant]
  4. DIOVAN [Concomitant]
  5. ACYCLOVIR [Concomitant]
  6. REGLAN [Concomitant]
  7. DIFLUCAN [Concomitant]
  8. CELEXA [Concomitant]
  9. ATIVAN [Concomitant]
  10. TOPROL-XL [Concomitant]
  11. HYDROCHLOROTHIAZIDE [Concomitant]
  12. PHENERGAN (PROMETHAZINE HYDROCHLORIDE) [Concomitant]

REACTIONS (12)
  - ALANINE AMINOTRANSFERASE INCREASED [None]
  - ASPARTATE AMINOTRANSFERASE INCREASED [None]
  - BLOOD CHLORIDE DECREASED [None]
  - GRAM STAIN POSITIVE [None]
  - HAEMATOCRIT DECREASED [None]
  - HAEMOGLOBIN DECREASED [None]
  - NAUSEA [None]
  - PLATELET COUNT DECREASED [None]
  - RED BLOOD CELL COUNT DECREASED [None]
  - SEPSIS [None]
  - VOMITING [None]
  - WHITE BLOOD CELL COUNT DECREASED [None]
